FAERS Safety Report 17914387 (Version 6)
Quarter: 2021Q1

REPORT INFORMATION
  Report Type: Report from Study
  Country: US (occurrence: US)
  Receive Date: 20200618
  Receipt Date: 20210325
  Transmission Date: 20210419
  Serious: Yes (Hospitalization, Other)
  Sender: FDA-Public Use
  Company Number: US-BAUSCH-BL-2020-017291

PATIENT
  Age: 81 Year
  Sex: Male
  Weight: 77.18 kg

DRUGS (14)
  1. METFORMIN [Concomitant]
     Active Substance: METFORMIN HYDROCHLORIDE
     Indication: DIABETES MELLITUS
     Route: 048
  2. ENTRESTO [Concomitant]
     Active Substance: SACUBITRIL\VALSARTAN
     Dosage: 49/51 MG, MONDAY, TUESDAY AND FRIDAY
     Route: 048
  3. XIFAXAN [Suspect]
     Active Substance: RIFAXIMIN
     Indication: HEPATIC CIRRHOSIS
     Route: 048
     Dates: start: 2017, end: 20200629
  4. MAGNESIUM OXIDE. [Concomitant]
     Active Substance: MAGNESIUM OXIDE
     Indication: PRODUCT USED FOR UNKNOWN INDICATION
     Dosage: 241.3 MG MAGNESIUM, 1 TIME IN THE EVENING
     Route: 048
  5. FUROSEMIDE. [Concomitant]
     Active Substance: FUROSEMIDE
     Indication: PRODUCT USED FOR UNKNOWN INDICATION
     Route: 048
  6. MILK THISTLE [Concomitant]
     Active Substance: DIETARY SUPPLEMENT\HERBALS\MILK THISTLE
     Indication: PRODUCT USED FOR UNKNOWN INDICATION
  7. FERROCITE [Concomitant]
     Active Substance: FERROUS FUMARATE
     Indication: PRODUCT USED FOR UNKNOWN INDICATION
  8. BACTRIM DS [Concomitant]
     Active Substance: SULFAMETHOXAZOLE\TRIMETHOPRIM
     Dosage: 800/160 MG, MONDAY, TUESDAY AND FRIDAY
     Route: 048
  9. ENTRESTO [Concomitant]
     Active Substance: SACUBITRIL\VALSARTAN
     Indication: CARDIAC DISORDER
     Route: 048
  10. FERROUS SULFATE. [Concomitant]
     Active Substance: FERROUS SULFATE
     Indication: PRODUCT USED FOR UNKNOWN INDICATION
     Dosage: 65 MG OF IRON
     Route: 048
  11. LACTULOSE. [Suspect]
     Active Substance: LACTULOSE
     Indication: HEPATIC CIRRHOSIS
     Dosage: 10 GRAM/15 ML, AS NEEDED
     Route: 048
     Dates: start: 2017
  12. LACTULOSE. [Suspect]
     Active Substance: LACTULOSE
     Dosage: DOSE INCREASED
     Route: 048
     Dates: start: 201812
  13. LACTULOSE. [Suspect]
     Active Substance: LACTULOSE
     Dosage: DOSE DECREASED
     Route: 048
     Dates: start: 2017
  14. BACTRIM DS [Concomitant]
     Active Substance: SULFAMETHOXAZOLE\TRIMETHOPRIM
     Indication: INFECTION
     Dosage: 800/160 MG, FREQUENCY: MONDAY, TUESDAY AND FRIDAY.
     Route: 048

REACTIONS (35)
  - Cerebral ischaemia [Unknown]
  - Radiation proctitis [Unknown]
  - Gastrointestinal wall thickening [Unknown]
  - Faeces discoloured [Unknown]
  - Weight decreased [Unknown]
  - Vomiting [Unknown]
  - Oedema peripheral [Recovering/Resolving]
  - Cholelithiasis [Unknown]
  - Diverticulum intestinal [Unknown]
  - Flatulence [Unknown]
  - Constipation [Unknown]
  - Balance disorder [Unknown]
  - Acute kidney injury [Recovering/Resolving]
  - Poor quality sleep [Unknown]
  - Cough [Unknown]
  - Retinal detachment [Unknown]
  - Peripheral swelling [Unknown]
  - Blood creatinine abnormal [Unknown]
  - Hypophagia [Unknown]
  - Melaena [Unknown]
  - Abdominal pain [Unknown]
  - Insurance issue [Unknown]
  - Cerebral atrophy [Unknown]
  - Iron deficiency [Unknown]
  - Cardiomegaly [Unknown]
  - Abdominal distension [Not Recovered/Not Resolved]
  - Nausea [Unknown]
  - Therapy interrupted [Unknown]
  - Ammonia increased [Unknown]
  - Sinus disorder [Unknown]
  - Anaemia [Unknown]
  - Encephalopathy [Not Recovered/Not Resolved]
  - Haematuria [Unknown]
  - Loss of personal independence in daily activities [Unknown]
  - Frequent bowel movements [Unknown]

NARRATIVE: CASE EVENT DATE: 2017
